FAERS Safety Report 5721441-6 (Version None)
Quarter: 2008Q2

REPORT INFORMATION
  Report Type: 
  Country: None (occurrence: None)
  Receive Date: 20080429
  Receipt Date: 20080424
  Transmission Date: 20081010
  Serious: Yes (Disabling)
  Sender: FDA-Public Use
  Company Number: CH-ASTRAZENECA-2008PK00874

PATIENT
  Age: 42 Year
  Sex: Female
  Weight: 63 kg

DRUGS (5)
  1. NOLVADEX [Suspect]
     Indication: BREAST CANCER IN SITU
     Route: 048
     Dates: start: 20051101, end: 20060401
  2. CARBOPLATIN [Concomitant]
     Indication: CHEMOTHERAPY MULTIPLE AGENTS SYSTEMIC
     Route: 042
     Dates: start: 20060412, end: 20060614
  3. TAXOL [Concomitant]
     Indication: CHEMOTHERAPY MULTIPLE AGENTS SYSTEMIC
     Route: 042
     Dates: start: 20060412, end: 20060614
  4. VEPESID [Concomitant]
     Indication: CHEMOTHERAPY MULTIPLE AGENTS SYSTEMIC
     Route: 048
     Dates: start: 20060412, end: 20060614
  5. IBANDRONAT [Concomitant]
     Indication: METASTASES TO BONE
     Route: 042
     Dates: start: 20060309

REACTIONS (1)
  - OPTIC NEUROPATHY [None]
